FAERS Safety Report 7620174-9 (Version None)
Quarter: 2011Q3

REPORT INFORMATION
  Report Type: 
  Country: None (occurrence: None)
  Receive Date: 20110719
  Receipt Date: 20110708
  Transmission Date: 20111222
  Serious: No
  Sender: FDA-Public Use
  Company Number: US-JNJFOC-20110704192

PATIENT
  Sex: Male
  Weight: 136.08 kg

DRUGS (9)
  1. PROZAC [Concomitant]
     Route: 065
  2. OXYCONTIN [Concomitant]
     Route: 065
  3. TRILEPTAL [Concomitant]
     Route: 065
  4. LITHIUM CARBONATE [Concomitant]
     Route: 065
  5. LORTAB [Concomitant]
     Route: 065
  6. RISPERDAL [Suspect]
     Indication: SCHIZOAFFECTIVE DISORDER
     Route: 065
  7. INVEGA SUSTENNA [Suspect]
     Indication: SCHIZOAFFECTIVE DISORDER
     Route: 030
     Dates: start: 20100101
  8. AMBIEN [Concomitant]
     Route: 065
  9. CLONOPIN [Concomitant]
     Route: 065

REACTIONS (1)
  - RETROGRADE EJACULATION [None]
